FAERS Safety Report 8975925 (Version 1)
Quarter: 2012Q4

REPORT INFORMATION
  Report Type: 
  Country: US (occurrence: US)
  Receive Date: 20121219
  Receipt Date: 20121219
  Transmission Date: 20130627
  Serious: Yes (Other)
  Sender: FDA-Public Use
  Company Number: PHHY2012US114778

PATIENT
  Age: 72 Year
  Sex: Female

DRUGS (2)
  1. BUFFERIN [Suspect]
     Indication: HEADACHE
     Dosage: UNK UKN, UNK
     Route: 048
     Dates: start: 1968, end: 2012
  2. ALLEGRA [Suspect]
     Indication: HYPERSENSITIVITY
     Dosage: UNK UKN, UNK
     Route: 048
     Dates: start: 2006

REACTIONS (8)
  - Transient ischaemic attack [Recovered/Resolved]
  - Movement disorder [Recovered/Resolved]
  - Speech disorder [Recovered/Resolved]
  - Gait disturbance [Recovered/Resolved]
  - Visual impairment [Recovered/Resolved]
  - Chest pain [Recovered/Resolved]
  - Urticaria [Recovered/Resolved]
  - Incorrect drug administration duration [Unknown]
